FAERS Safety Report 8320143-X (Version None)
Quarter: 2012Q2

REPORT INFORMATION
  Report Type: 
  Country: None (occurrence: None)
  Receive Date: 20120430
  Receipt Date: 20120420
  Transmission Date: 20120825
  Serious: Yes (Other)
  Sender: FDA-Public Use
  Company Number: US-BIOGENIDEC-2011BI044109

PATIENT
  Age: 36 Year
  Sex: Female

DRUGS (2)
  1. TYSABRI [Suspect]
     Indication: MULTIPLE SCLEROSIS
     Route: 042
     Dates: start: 20070221, end: 20100406
  2. TYSABRI [Suspect]
     Route: 042
     Dates: start: 20070321, end: 20080818

REACTIONS (1)
  - UMBILICAL CORD ABNORMALITY [None]
